FAERS Safety Report 7061734-6 (Version None)
Quarter: 2010Q4

REPORT INFORMATION
  Report Type: 
  Country: None (occurrence: None)
  Receive Date: 20101026
  Receipt Date: 20101013
  Transmission Date: 20110411
  Serious: Yes (Hospitalization, Other)
  Sender: FDA-Public Use
  Company Number: US-ELI_LILLY_AND_COMPANY-US201009002576

PATIENT
  Sex: Male
  Weight: 151.47 kg

DRUGS (17)
  1. PEMETREXED [Suspect]
     Indication: NON-SMALL CELL LUNG CANCER
     Dosage: 500 MG/M2, ON DAY 1 EVERY 21 DAYS
     Route: 042
     Dates: start: 20100524, end: 20100804
  2. PEMETREXED [Suspect]
     Dosage: 500 MG/M2, OTHER (DAY ONE EVERY 21DAYS)
     Route: 042
     Dates: start: 20100825
  3. BEVACIZUMAB [Suspect]
     Indication: NON-SMALL CELL LUNG CANCER
     Dosage: 15 MG/KG, ON DAY 1 EVERY 21 DAYS
     Route: 042
     Dates: start: 20100524, end: 20100804
  4. BEVACIZUMAB [Suspect]
     Dosage: 15 MG/KG, OTHER (DAY ONE EVERY 21 DAYS)
     Route: 042
     Dates: start: 20100825
  5. CARBOPLATIN [Suspect]
     Indication: NON-SMALL CELL LUNG CANCER
     Dosage: 6 D/F (AUC), OTHER (DAY ONE EVERY 21 DAYS)
     Route: 042
     Dates: start: 20100524, end: 20100804
  6. ZYPREXA [Concomitant]
     Indication: DEPRESSION
     Dosage: 10 MG, DAILY (1/D)
     Route: 048
     Dates: start: 20030101
  7. FOLIC ACID [Concomitant]
     Indication: PROPHYLAXIS
     Dates: start: 20100512
  8. VITAMIN B-12 [Concomitant]
     Indication: PROPHYLAXIS
     Dates: start: 20100512
  9. METFORMIN [Concomitant]
     Indication: DIABETES MELLITUS
     Dosage: 100 MG, DAILY (1/D)
     Route: 048
     Dates: start: 20060101
  10. OXYCODONE WITH APAP [Concomitant]
     Indication: BACK PAIN
     Dosage: 10 MG, AS NEEDED
     Route: 048
     Dates: start: 19960101
  11. TRAZODIL [Concomitant]
     Indication: INSOMNIA
     Dosage: 100 MG, DAILY (1/D)
     Route: 048
     Dates: start: 20020101
  12. CARVEDILOL [Concomitant]
     Indication: HYPERTENSION
     Dosage: 25 MG, 2/D
     Dates: start: 20020101
  13. FUROSEMIDE [Concomitant]
     Indication: CHRONIC OBSTRUCTIVE PULMONARY DISEASE
     Dosage: 40 MG, 3/D
     Route: 048
     Dates: start: 20000101
  14. METOCLOPRAMIDE [Concomitant]
     Indication: IMPAIRED GASTRIC EMPTYING
     Dates: start: 20060101
  15. DIOVAN [Concomitant]
     Indication: HYPERTENSION
     Dosage: 320 G, DAILY (1/D)
     Route: 048
     Dates: start: 20000101
  16. LORASTINE [Concomitant]
     Indication: HYPERCHOLESTEROLAEMIA
     Dates: start: 20000101
  17. OMEPRAZOLE [Concomitant]
     Indication: GASTROOESOPHAGEAL REFLUX DISEASE
     Dosage: 20 MG, EACH EVENING
     Route: 048
     Dates: start: 20000101

REACTIONS (2)
  - DIARRHOEA [None]
  - DYSPNOEA [None]
